FAERS Safety Report 9543051 (Version 1)
Quarter: 2013Q3

REPORT INFORMATION
  Report Type: Spontaneous
  Country: JP (occurrence: JP)
  Receive Date: 20130923
  Receipt Date: 20130923
  Transmission Date: 20140515
  Serious: Yes (Hospitalization)
  Sender: FDA-Public Use
  Company Number: PHHY2013JP102362

PATIENT
  Age: 84 Year
  Sex: Female
  Weight: 43.6 kg

DRUGS (11)
  1. RIFAMPICIN [Suspect]
     Indication: DISSEMINATED TUBERCULOSIS
     Dosage: 300 MG, UNK
  2. RIFAMPICIN [Suspect]
     Dosage: 25 MG, UNK
  3. PREDNISOLONE [Suspect]
     Indication: DISSEMINATED TUBERCULOSIS
     Dosage: 20 MG, UNK
  4. PREDNISOLONE [Suspect]
     Dosage: 5 MG, UNK
  5. PREDNISOLONE [Suspect]
     Dosage: 40 MG, UNK
  6. PREDNISOLONE [Suspect]
     Dosage: 10 MG, UNK
  7. ISONIAZID [Concomitant]
     Indication: DISSEMINATED TUBERCULOSIS
     Dosage: 200 MG, UNK
  8. ISONIAZID [Concomitant]
     Dosage: 25 MG, UNK
  9. ETHAMBUTOL [Concomitant]
     Indication: DISSEMINATED TUBERCULOSIS
     Dosage: 500 MG, UNK
  10. CEFMETAZOLE [Concomitant]
     Indication: URINARY TRACT INFECTION
  11. FAMOTIDINE [Concomitant]

REACTIONS (3)
  - Pneumonitis [Recovered/Resolved]
  - Pyrexia [Recovered/Resolved]
  - Chest X-ray abnormal [Recovered/Resolved]
